FAERS Safety Report 7533767-4 (Version None)
Quarter: 2011Q2

REPORT INFORMATION
  Report Type: 
  Country: None (occurrence: None)
  Receive Date: 20110608
  Receipt Date: 20110607
  Transmission Date: 20111010
  Serious: Yes (Other)
  Sender: FDA-Public Use
  Company Number: US-PFIZER INC-2011124336

PATIENT
  Sex: Female
  Weight: 57 kg

DRUGS (1)
  1. CHANTIX [Suspect]
     Indication: SMOKING CESSATION THERAPY
     Dosage: 0.5 MG, DAILY
     Route: 048
     Dates: start: 20110606

REACTIONS (5)
  - CHEST DISCOMFORT [None]
  - DISCOMFORT [None]
  - THROAT TIGHTNESS [None]
  - COUGH [None]
  - DYSPNOEA [None]
